FAERS Safety Report 9460464 (Version 1)
Quarter: 2013Q3

REPORT INFORMATION
  Report Type: Spontaneous
  Country: US (occurrence: US)
  Receive Date: 20130815
  Receipt Date: 20130815
  Transmission Date: 20140515
  Serious: No
  Sender: FDA-Public Use
  Company Number: US-PFIZER INC-2013234875

PATIENT
  Age: 65 Year
  Sex: Female
  Weight: 70.3 kg

DRUGS (2)
  1. XELJANZ [Suspect]
     Indication: ARTHRITIS
     Dosage: 5 MG, 2X/DAY
     Route: 048
     Dates: start: 2013, end: 20130811
  2. HYDROXYCHLOROQUINE [Concomitant]
     Indication: ARTHRITIS
     Dosage: 200 MG

REACTIONS (2)
  - Herpes zoster [Unknown]
  - Blood cholesterol increased [Unknown]
